FAERS Safety Report 8602641 (Version 2)
Quarter: 2012Q4

REPORT INFORMATION
  Report Type: 
  Country: IT (occurrence: IT)
  Receive Date: 20120607
  Receipt Date: 20120912
  Transmission Date: 20130627
  Serious: Yes (Hospitalization)
  Sender: FDA-Public Use
  Company Number: IT-BRISTOL-MYERS SQUIBB COMPANY-16639353

PATIENT
  Age: 48 Year
  Sex: Male

DRUGS (4)
  1. REYATAZ [Suspect]
     Indication: ANTIRETROVIRAL THERAPY
     Dosage: tabs
     Route: 048
     Dates: start: 20110101, end: 20110305
  2. NORVIR [Suspect]
     Indication: ANTIRETROVIRAL THERAPY
     Dosage: tabs
     Route: 048
     Dates: start: 20110101, end: 20110305
  3. TRUVADA [Suspect]
     Indication: ANTIRETROVIRAL THERAPY
     Dosage: tabs
     Route: 048
     Dates: start: 20110101, end: 20110305
  4. FOY [Concomitant]
     Route: 042

REACTIONS (2)
  - Renal failure acute [Recovered/Resolved]
  - Haemolytic uraemic syndrome [Unknown]
